FAERS Safety Report 7341068-2 (Version None)
Quarter: 2011Q1

REPORT INFORMATION
  Report Type: 
  Country: None (occurrence: None)
  Receive Date: 20110228
  Receipt Date: 20110223
  Transmission Date: 20110831
  Serious: Yes (Other)
  Sender: FDA-Public Use
  Company Number: A0915018A

PATIENT
  Age: 55 Year
  Sex: Female

DRUGS (1)
  1. METHYLCELLULOSE (FORMULATION UNKNOWN) (METHYLCELLULOSE) [Suspect]
     Dosage: ORAL
     Route: 048

REACTIONS (2)
  - RECTAL HAEMORRHAGE [None]
  - DRUG ADMINISTRATION ERROR [None]
